FAERS Safety Report 8606070-9 (Version None)
Quarter: 2012Q3

REPORT INFORMATION
  Report Type: 
  Country: None (occurrence: None)
  Receive Date: 20120820
  Receipt Date: 20120806
  Transmission Date: 20120928
  Serious: No
  Sender: FDA-Public Use
  Company Number: US-JNJFOC-20120804518

PATIENT
  Sex: Female
  Weight: 63.05 kg

DRUGS (4)
  1. FENTANYL-100 [Suspect]
     Indication: BACK PAIN
     Route: 062
     Dates: start: 20120701, end: 20120803
  2. FENTANYL-100 [Suspect]
     Route: 062
     Dates: start: 20120803
  3. FENTANYL CITRATE [Suspect]
     Indication: BACK PAIN
     Route: 062
     Dates: start: 20110101, end: 20120522
  4. FENTANYL-100 [Suspect]
     Route: 062
     Dates: start: 20110101, end: 20120522

REACTIONS (3)
  - PRODUCT QUALITY ISSUE [None]
  - POOR QUALITY DRUG ADMINISTERED [None]
  - DRUG INEFFECTIVE [None]
